FAERS Safety Report 18292479 (Version 2)
Quarter: 2020Q4

REPORT INFORMATION
  Report Type: Spontaneous
  Country: FR (occurrence: FR)
  Receive Date: 20200922
  Receipt Date: 20201006
  Transmission Date: 20210113
  Serious: Yes (Life-Threatening, Hospitalization, Other)
  Sender: FDA-Public Use
  Company Number: FR-AUROBINDO-AUR-APL-2020-048387

PATIENT
  Age: 73 Year
  Sex: Male

DRUGS (15)
  1. MEROPENEM. [Suspect]
     Active Substance: MEROPENEM
     Indication: ANTIBIOTIC THERAPY
     Dosage: 6 GRAM, ONCE A DAY
     Route: 065
  2. IDARUBICIN [Suspect]
     Active Substance: IDARUBICIN
     Indication: ACUTE MYELOID LEUKAEMIA
     Dosage: UNK
     Route: 065
  3. ARACYTIN [Suspect]
     Active Substance: CYTARABINE
     Indication: CHEMOTHERAPY
  4. AZACITIDINE. [Suspect]
     Active Substance: AZACITIDINE
     Indication: PRODUCT USED FOR UNKNOWN INDICATION
     Dosage: 75 MILLIGRAM/SQ. METER, ONCE A DAY
     Route: 065
  5. ARACYTIN [Suspect]
     Active Substance: CYTARABINE
     Indication: ACUTE MYELOID LEUKAEMIA
     Dosage: UNK
     Route: 065
  6. AMIKACIN. [Suspect]
     Active Substance: AMIKACIN
     Indication: PRODUCT USED FOR UNKNOWN INDICATION
     Dosage: 1800 MILLIGRAM (SINGLE DOSE)
     Route: 065
  7. SULFAMETHOXAZOLE AND TRIMETHOPRIM [Suspect]
     Active Substance: SULFAMETHOXAZOLE\TRIMETHOPRIM
     Indication: PRODUCT USED FOR UNKNOWN INDICATION
     Dosage: 800/40 MG, TWO TIMES A DAY
     Route: 065
  8. CIPROFLOXACIN. [Suspect]
     Active Substance: CIPROFLOXACIN
     Indication: AEROMONAS INFECTION
  9. IDARUBICIN [Suspect]
     Active Substance: IDARUBICIN
     Indication: CHEMOTHERAPY
  10. CIPROFLOXACIN. [Suspect]
     Active Substance: CIPROFLOXACIN
     Indication: CHEMOTHERAPY
     Dosage: 750 MILLIGRAM, TWO TIMES A DAY (1500 MILLIGRAM, ONCE A DAY)
     Route: 065
  11. PIPERACILLIN AND TAZOBACTAM [Suspect]
     Active Substance: PIPERACILLIN SODIUM\TAZOBACTAM SODIUM
     Indication: ANTIBIOTIC THERAPY
     Dosage: 500 MILLIGRAM, FOUR TIMES/DAY (4 G)
     Route: 065
  12. CEFEPIME [Suspect]
     Active Substance: CEFEPIME HYDROCHLORIDE
     Indication: PRODUCT USED FOR UNKNOWN INDICATION
     Dosage: 6 GRAM, ONCE A DAY
     Route: 065
  13. MEROPENEM. [Suspect]
     Active Substance: MEROPENEM
     Indication: AEROMONAS INFECTION
  14. VANCOMYCIN [Suspect]
     Active Substance: VANCOMYCIN
     Indication: ANTIBIOTIC THERAPY
     Dosage: 2 GRAM, ONCE A DAY
     Route: 065
  15. LOMUSTIN [Suspect]
     Active Substance: LOMUSTINE
     Indication: CHEMOTHERAPY
     Dosage: UNK
     Route: 065

REACTIONS (8)
  - Abscess limb [Recovered/Resolved]
  - Abscess bacterial [Recovered/Resolved]
  - Drug resistance [Unknown]
  - Necrotising fasciitis [Unknown]
  - Septic shock [Recovered/Resolved]
  - Aeromonas infection [Recovered/Resolved]
  - Pathogen resistance [Unknown]
  - Condition aggravated [Unknown]
